FAERS Safety Report 9222929 (Version 1)
Quarter: 2013Q2

REPORT INFORMATION
  Report Type: Spontaneous
  Country: IT (occurrence: IT)
  Receive Date: 20130410
  Receipt Date: 20130410
  Transmission Date: 20140414
  Serious: Yes (Hospitalization)
  Sender: FDA-Public Use
  Company Number: IT-JNJFOC-2006301205

PATIENT
  Age: 35 Year
  Sex: Female

DRUGS (4)
  1. IBUPROFEN [Suspect]
     Indication: PRODUCT USED FOR UNKNOWN INDICATION
     Dosage: DAILY DOSE TEXT: UNSPECIFIED HIGH DOSAGE
     Route: 048
  2. DICLOFENAC [Suspect]
     Indication: PRODUCT USED FOR UNKNOWN INDICATION
     Dosage: DAILY DOSE TEXT: UNSPECIFIED HIGH DOSAGE
     Route: 048
  3. CONTRAMAL [Suspect]
     Indication: HEADACHE
     Dosage: DAILY DOSE TEXT: 3000 MG DAILY
     Route: 048
  4. NIMESULIDE [Suspect]
     Indication: PRODUCT USED FOR UNKNOWN INDICATION
     Dosage: DAILY DOSE TEXT: UNSPECIFIED HIGH DOSAGE
     Route: 048

REACTIONS (3)
  - Drug abuse [Recovered/Resolved]
  - Presyncope [Recovered/Resolved]
  - Overdose [Recovered/Resolved]
